FAERS Safety Report 18265723 (Version 13)
Quarter: 2024Q4

REPORT INFORMATION
  Report Type: Spontaneous
  Country: CA (occurrence: CA)
  Receive Date: 20200915
  Receipt Date: 20241115
  Transmission Date: 20250115
  Serious: Yes (Other)
  Sender: BAUSCH AND LOMB
  Company Number: CA-BAUSCH-BL-2020-025875

PATIENT
  Age: 61 Year
  Sex: Female

DRUGS (196)
  1. DILTIAZEM HYDROCHLORIDE [Suspect]
     Active Substance: DILTIAZEM HYDROCHLORIDE
     Indication: Product used for unknown indication
     Dosage: 2, UNK,1DF. 3, UNK,1DF,14D. 4, UNK,14D, 1DF 1IN 12 HOUR
     Route: 065
  2. DILTIAZEM HYDROCHLORIDE [Suspect]
     Active Substance: DILTIAZEM HYDROCHLORIDE
     Route: 065
  3. DILTIAZEM HYDROCHLORIDE [Suspect]
     Active Substance: DILTIAZEM HYDROCHLORIDE
     Route: 065
  4. METFORMIN [Suspect]
     Active Substance: METFORMIN HYDROCHLORIDE
     Indication: Product used for unknown indication
     Dosage: 2, 1 DF
     Route: 065
  5. METFORMIN [Suspect]
     Active Substance: METFORMIN HYDROCHLORIDE
     Dosage: METFORMIN?HYDROCHLORIDE
     Route: 065
  6. METFORMIN [Suspect]
     Active Substance: METFORMIN HYDROCHLORIDE
     Dosage: METFORMIN?HYDROCHLORIDE
     Route: 065
  7. METFORMIN [Suspect]
     Active Substance: METFORMIN HYDROCHLORIDE
     Dosage: METFORMIN?HYDROCHLORIDE
     Route: 065
  8. DILTIAZEM HYDROCHLORIDE [Suspect]
     Active Substance: DILTIAZEM HYDROCHLORIDE
     Indication: Product used for unknown indication
     Dosage: CAPSULE, EXTENDED RELEASE
     Route: 065
  9. ALBUTEROL [Suspect]
     Active Substance: ALBUTEROL
     Indication: Product used for unknown indication
     Route: 065
  10. ALBUTEROL [Suspect]
     Active Substance: ALBUTEROL
     Dosage: SALBUTAMOL SULFATE
     Route: 065
  11. NITROGLYCERIN [Suspect]
     Active Substance: NITROGLYCERIN
     Indication: Product used for unknown indication
     Route: 065
  12. NITROGLYCERIN [Suspect]
     Active Substance: NITROGLYCERIN
     Indication: Angina pectoris
     Dosage: NITROGLYCERIN, 2, SC,100 MG; 1DF 1 IN 12 HOURS
     Route: 065
  13. NITROGLYCERIN [Suspect]
     Active Substance: NITROGLYCERIN
     Route: 065
  14. HYDROCORTISONE ACETATE [Suspect]
     Active Substance: HYDROCORTISONE ACETATE
     Indication: Product used for unknown indication
     Route: 065
  15. LOPERAMIDE [Suspect]
     Active Substance: LOPERAMIDE
     Indication: Product used for unknown indication
     Route: 065
  16. LOPERAMIDE [Suspect]
     Active Substance: LOPERAMIDE
     Indication: Asthma
     Dosage: LOPERAMIDE
     Route: 065
  17. LOPERAMIDE [Suspect]
     Active Substance: LOPERAMIDE
     Dosage: LOPERAMIDE
     Route: 065
  18. LOPERAMIDE [Suspect]
     Active Substance: LOPERAMIDE
     Route: 065
  19. LOPERAMIDE [Suspect]
     Active Substance: LOPERAMIDE
     Route: 058
  20. BETAMETHASONE VALERATE [Suspect]
     Active Substance: BETAMETHASONE VALERATE
     Indication: Eczema
     Route: 065
  21. BETAMETHASONE VALERATE [Suspect]
     Active Substance: BETAMETHASONE VALERATE
     Route: 065
  22. ADVAIR HFA [Suspect]
     Active Substance: FLUTICASONE PROPIONATE\SALMETEROL XINAFOATE
     Indication: Product used for unknown indication
     Route: 065
  23. ADVAIR HFA [Suspect]
     Active Substance: FLUTICASONE PROPIONATE\SALMETEROL XINAFOATE
     Dosage: ROUTE: INHALATION
     Route: 055
  24. ADVAIR HFA [Suspect]
     Active Substance: FLUTICASONE PROPIONATE\SALMETEROL XINAFOATE
     Route: 065
  25. ADVAIR HFA [Suspect]
     Active Substance: FLUTICASONE PROPIONATE\SALMETEROL XINAFOATE
     Dosage: NOT SPECIFIED
     Route: 065
  26. ADVAIR HFA [Suspect]
     Active Substance: FLUTICASONE PROPIONATE\SALMETEROL XINAFOATE
     Route: 065
  27. ACETAMINOPHEN [Suspect]
     Active Substance: ACETAMINOPHEN
     Indication: Product used for unknown indication
     Route: 065
  28. ACETAMINOPHEN [Suspect]
     Active Substance: ACETAMINOPHEN
     Dosage: APO-ACETAMINOPHEN
     Route: 065
  29. ACETAMINOPHEN [Suspect]
     Active Substance: ACETAMINOPHEN
     Route: 065
  30. ACETAMINOPHEN [Suspect]
     Active Substance: ACETAMINOPHEN
     Route: 065
  31. ACETAMINOPHEN [Suspect]
     Active Substance: ACETAMINOPHEN
     Route: 065
  32. AMITRIPTYLINE HYDROCHLORIDE [Suspect]
     Active Substance: AMITRIPTYLINE HYDROCHLORIDE
     Indication: Product used for unknown indication
     Route: 065
  33. ATORVASTATIN [Suspect]
     Active Substance: ATORVASTATIN
     Indication: Product used for unknown indication
     Route: 065
  34. ATORVASTATIN [Suspect]
     Active Substance: ATORVASTATIN
     Dosage: ATORVASTATIN CALCIUM
     Route: 065
  35. ATORVASTATIN [Suspect]
     Active Substance: ATORVASTATIN
     Dosage: ATORVASTATIN CALCIUM
     Route: 065
  36. PREDNISONE [Suspect]
     Active Substance: PREDNISONE
     Indication: Product used for unknown indication
     Route: 065
  37. PREDNISONE [Suspect]
     Active Substance: PREDNISONE
     Route: 065
  38. PREDNISONE [Suspect]
     Active Substance: PREDNISONE
     Route: 065
  39. PREDNISONE [Suspect]
     Active Substance: PREDNISONE
     Route: 065
  40. PREDNISONE [Suspect]
     Active Substance: PREDNISONE
     Route: 065
  41. PREDNISONE [Suspect]
     Active Substance: PREDNISONE
     Route: 065
  42. PREDNISONE [Suspect]
     Active Substance: PREDNISONE
     Route: 065
  43. PREDNISONE [Suspect]
     Active Substance: PREDNISONE
     Route: 065
  44. ATROVENT [Suspect]
     Active Substance: IPRATROPIUM BROMIDE
     Indication: Product used for unknown indication
     Route: 065
  45. AZITHROMYCIN ANHYDROUS [Suspect]
     Active Substance: AZITHROMYCIN ANHYDROUS
     Indication: Product used for unknown indication
     Route: 065
  46. AZITHROMYCIN ANHYDROUS [Suspect]
     Active Substance: AZITHROMYCIN ANHYDROUS
     Route: 065
  47. COMBIVENT [Suspect]
     Active Substance: ALBUTEROL SULFATE\IPRATROPIUM BROMIDE
     Indication: Product used for unknown indication
     Dosage: SOLUTION FOR INHALATION
     Route: 055
  48. PINAVERIUM BROMIDE [Suspect]
     Active Substance: PINAVERIUM BROMIDE
     Indication: Product used for unknown indication
     Route: 065
  49. DIMENHYDRINATE [Suspect]
     Active Substance: DIMENHYDRINATE
     Indication: Product used for unknown indication
     Route: 065
  50. FLOVENT [Suspect]
     Active Substance: FLUTICASONE PROPIONATE
     Indication: Product used for unknown indication
     Route: 065
  51. FLOVENT [Suspect]
     Active Substance: FLUTICASONE PROPIONATE
     Route: 065
  52. FUROSEMIDE [Suspect]
     Active Substance: FUROSEMIDE
     Indication: Product used for unknown indication
     Route: 065
  53. FUROSEMIDE [Suspect]
     Active Substance: FUROSEMIDE
     Dosage: APO-FUROSEMIDE
     Route: 065
  54. MEPOLIZUMAB [Suspect]
     Active Substance: MEPOLIZUMAB
     Indication: Asthma
     Route: 058
  55. MEPOLIZUMAB [Suspect]
     Active Substance: MEPOLIZUMAB
     Indication: Product used for unknown indication
     Route: 065
  56. MEPOLIZUMAB [Suspect]
     Active Substance: MEPOLIZUMAB
     Route: 058
  57. MOMETASONE FUROATE [Suspect]
     Active Substance: MOMETASONE FUROATE
     Indication: Product used for unknown indication
     Route: 065
  58. MOMETASONE FUROATE [Suspect]
     Active Substance: MOMETASONE FUROATE
     Route: 065
  59. MOMETASONE FUROATE [Suspect]
     Active Substance: MOMETASONE FUROATE
     Route: 065
  60. NOVORAPID [Suspect]
     Active Substance: INSULIN ASPART
     Indication: Product used for unknown indication
     Dosage: NOVORAPID FLEXTOUCH 3ML PREFILLED PEN, SOLUTION SUBCUTANEOUS
     Route: 042
  61. NOVORAPID [Suspect]
     Active Substance: INSULIN ASPART
     Dosage: SOLUTION SUBCUTANEOUS
     Route: 042
  62. NOVORAPID [Suspect]
     Active Substance: INSULIN ASPART
     Dosage: NOVORAPID FLEXTOUCH 3ML PREFILLED PEN, SOLUTION SUBCUTANEOUS
     Route: 042
  63. NOVORAPID [Suspect]
     Active Substance: INSULIN ASPART
     Route: 058
  64. NITROFURANTOIN [Suspect]
     Active Substance: NITROFURANTOIN
     Indication: Product used for unknown indication
     Route: 065
  65. NITROFURANTOIN [Suspect]
     Active Substance: NITROFURANTOIN
     Route: 065
  66. NITROFURANTOIN [Suspect]
     Active Substance: NITROFURANTOIN
     Route: 065
  67. QUINAPRIL HYDROCHLORIDE [Suspect]
     Active Substance: QUINAPRIL HYDROCHLORIDE
     Indication: Product used for unknown indication
     Route: 065
  68. QUINAPRIL HYDROCHLORIDE [Suspect]
     Active Substance: QUINAPRIL HYDROCHLORIDE
     Route: 065
  69. QUINAPRIL HYDROCHLORIDE [Suspect]
     Active Substance: QUINAPRIL HYDROCHLORIDE
     Route: 065
  70. QUINAPRIL HYDROCHLORIDE [Suspect]
     Active Substance: QUINAPRIL HYDROCHLORIDE
     Route: 065
  71. QUINAPRIL HYDROCHLORIDE [Suspect]
     Active Substance: QUINAPRIL HYDROCHLORIDE
     Route: 065
  72. QUINAPRIL HYDROCHLORIDE [Suspect]
     Active Substance: QUINAPRIL HYDROCHLORIDE
     Dosage: QUINAPRIL
     Route: 065
  73. QUINAPRIL HYDROCHLORIDE [Suspect]
     Active Substance: QUINAPRIL HYDROCHLORIDE
     Route: 065
  74. QUINAPRIL HYDROCHLORIDE [Suspect]
     Active Substance: QUINAPRIL HYDROCHLORIDE
     Route: 065
  75. LACTULOSE [Suspect]
     Active Substance: LACTULOSE
     Indication: Product used for unknown indication
     Route: 048
  76. GLYCOPYRROLATE [Suspect]
     Active Substance: GLYCOPYRROLATE
     Indication: Product used for unknown indication
     Route: 065
  77. SEMAGLUTIDE [Suspect]
     Active Substance: SEMAGLUTIDE
     Indication: Product used for unknown indication
     Dosage: SOLUTION SUBCUTANEOUS
     Route: 042
  78. SEMAGLUTIDE [Suspect]
     Active Substance: SEMAGLUTIDE
     Route: 042
  79. SEMAGLUTIDE [Suspect]
     Active Substance: SEMAGLUTIDE
     Route: 042
  80. SEMAGLUTIDE [Suspect]
     Active Substance: SEMAGLUTIDE
     Dosage: SOLUTION?SUBCUTANEOUS
     Route: 042
  81. SEMAGLUTIDE [Suspect]
     Active Substance: SEMAGLUTIDE
     Dosage: SOLUTION SUBCUTANEOUS
     Route: 058
  82. SEMAGLUTIDE [Suspect]
     Active Substance: SEMAGLUTIDE
     Route: 065
  83. SINGULAIR [Suspect]
     Active Substance: MONTELUKAST SODIUM
     Indication: Product used for unknown indication
     Route: 065
  84. SINGULAIR [Suspect]
     Active Substance: MONTELUKAST SODIUM
     Route: 065
  85. SINGULAIR [Suspect]
     Active Substance: MONTELUKAST SODIUM
     Dosage: NOT SPECIFIED
     Route: 065
  86. SPIRIVA RESPIMAT [Suspect]
     Active Substance: TIOTROPIUM BROMIDE
     Indication: Product used for unknown indication
     Dosage: FOR ORAL INHALATION WITH RESPIMAT INHALER ONLY 0.5 G/DOSE
     Route: 055
  87. SPIRIVA RESPIMAT [Suspect]
     Active Substance: TIOTROPIUM BROMIDE
     Route: 065
  88. TRESIBA [Suspect]
     Active Substance: INSULIN DEGLUDEC
     Indication: Product used for unknown indication
     Route: 058
  89. UNIPHYL [Suspect]
     Active Substance: THEOPHYLLINE ANHYDROUS
     Indication: Product used for unknown indication
     Dosage: EXTENDED RELEASE
     Route: 065
  90. VITAMIN B12 [Suspect]
     Active Substance: CYANOCOBALAMIN
     Indication: Product used for unknown indication
     Route: 042
  91. VITAMIN B12 [Suspect]
     Active Substance: CYANOCOBALAMIN
     Route: 042
  92. VITAMIN B12 [Suspect]
     Active Substance: CYANOCOBALAMIN
     Route: 042
  93. DIBUCAINE HYDROCHLORIDE [Suspect]
     Active Substance: DIBUCAINE HYDROCHLORIDE
     Indication: Product used for unknown indication
     Route: 065
  94. DIBUCAINE HYDROCHLORIDE [Suspect]
     Active Substance: DIBUCAINE HYDROCHLORIDE
     Route: 065
  95. DIBUCAINE HYDROCHLORIDE [Suspect]
     Active Substance: DIBUCAINE HYDROCHLORIDE
     Route: 065
  96. ESCULIN [Suspect]
     Active Substance: ESCULIN
     Indication: Product used for unknown indication
     Route: 065
  97. FLUTICASONE PROPIONATE\SALMETEROL XINAFOATE [Suspect]
     Active Substance: FLUTICASONE PROPIONATE\SALMETEROL XINAFOATE
     Indication: Product used for unknown indication
     Route: 065
  98. FLUTICASONE PROPIONATE\SALMETEROL XINAFOATE [Suspect]
     Active Substance: FLUTICASONE PROPIONATE\SALMETEROL XINAFOATE
     Route: 055
  99. INSULIN ASPART [Suspect]
     Active Substance: INSULIN ASPART
     Indication: Product used for unknown indication
     Route: 042
  100. INSULIN ASPART [Suspect]
     Active Substance: INSULIN ASPART
     Route: 042
  101. MONTELUKAST SODIUM [Suspect]
     Active Substance: MONTELUKAST SODIUM
     Indication: Product used for unknown indication
     Route: 065
  102. MONTELUKAST SODIUM [Suspect]
     Active Substance: MONTELUKAST SODIUM
     Indication: Asthma
     Route: 065
  103. MONTELUKAST SODIUM [Suspect]
     Active Substance: MONTELUKAST SODIUM
     Route: 065
  104. MONTELUKAST SODIUM [Suspect]
     Active Substance: MONTELUKAST SODIUM
     Dosage: 2 ADMINISTRATIONS
     Route: 065
  105. MONTELUKAST SODIUM [Suspect]
     Active Substance: MONTELUKAST SODIUM
     Route: 065
  106. MONTELUKAST SODIUM [Suspect]
     Active Substance: MONTELUKAST SODIUM
     Route: 065
  107. MONTELUKAST SODIUM [Suspect]
     Active Substance: MONTELUKAST SODIUM
     Route: 065
  108. PEDIAPRED [Suspect]
     Active Substance: PREDNISOLONE SODIUM PHOSPHATE
     Indication: Product used for unknown indication
     Route: 048
  109. PEDIAPRED [Suspect]
     Active Substance: PREDNISOLONE SODIUM PHOSPHATE
     Route: 048
  110. PEDIAPRED [Suspect]
     Active Substance: PREDNISOLONE SODIUM PHOSPHATE
     Route: 048
  111. PEDIAPRED [Suspect]
     Active Substance: PREDNISOLONE SODIUM PHOSPHATE
     Route: 048
  112. PEDIAPRED [Suspect]
     Active Substance: PREDNISOLONE SODIUM PHOSPHATE
     Route: 065
  113. PEDIAPRED [Suspect]
     Active Substance: PREDNISOLONE SODIUM PHOSPHATE
     Route: 048
  114. PEDIAPRED [Suspect]
     Active Substance: PREDNISOLONE SODIUM PHOSPHATE
     Route: 048
  115. PEDIAPRED [Suspect]
     Active Substance: PREDNISOLONE SODIUM PHOSPHATE
     Route: 048
  116. PEDIAPRED [Suspect]
     Active Substance: PREDNISOLONE SODIUM PHOSPHATE
     Route: 048
  117. PEDIAPRED [Suspect]
     Active Substance: PREDNISOLONE SODIUM PHOSPHATE
     Route: 048
  118. PINAVERIUM BROMIDE [Suspect]
     Active Substance: PINAVERIUM BROMIDE
     Indication: Product used for unknown indication
     Route: 065
  119. ACCUPRIL [Suspect]
     Active Substance: QUINAPRIL HYDROCHLORIDE
     Indication: Product used for unknown indication
     Route: 065
  120. INSULIN DEGLUDEC [Suspect]
     Active Substance: INSULIN DEGLUDEC
     Indication: Product used for unknown indication
     Route: 058
  121. LACTASE [Suspect]
     Active Substance: LACTASE
     Indication: Product used for unknown indication
     Route: 065
  122. LACTASE [Suspect]
     Active Substance: LACTASE
     Route: 065
  123. LACTASE [Suspect]
     Active Substance: LACTASE
     Route: 065
  124. LACTULOSE [Suspect]
     Active Substance: LACTULOSE
     Indication: Product used for unknown indication
     Route: 065
  125. LACTULOSE [Suspect]
     Active Substance: LACTULOSE
     Route: 065
  126. LACTULOSE [Suspect]
     Active Substance: LACTULOSE
     Route: 048
  127. LACTULOSE [Suspect]
     Active Substance: LACTULOSE
     Route: 065
  128. LACTULOSE [Suspect]
     Active Substance: LACTULOSE
     Route: 065
  129. METHYLCOBALAMIN [Suspect]
     Active Substance: METHYLCOBALAMIN
     Indication: Product used for unknown indication
     Route: 065
  130. SILDENAFIL CITRATE [Suspect]
     Active Substance: SILDENAFIL CITRATE
     Indication: Product used for unknown indication
     Route: 065
  131. SILDENAFIL CITRATE [Suspect]
     Active Substance: SILDENAFIL CITRATE
     Route: 065
  132. THEOPHYLLINE [Suspect]
     Active Substance: THEOPHYLLINE
     Indication: Product used for unknown indication
     Route: 065
  133. VENTOLIN [Suspect]
     Active Substance: ALBUTEROL SULFATE
     Indication: Product used for unknown indication
     Dosage: VENTOLIN
     Route: 065
  134. AMITRIPTYLINE [Suspect]
     Active Substance: AMITRIPTYLINE
     Indication: Product used for unknown indication
     Route: 065
  135. AMITRIPTYLINE [Suspect]
     Active Substance: AMITRIPTYLINE
     Route: 065
  136. AMITRIPTYLINE [Suspect]
     Active Substance: AMITRIPTYLINE
     Dosage: AMITRIPTYLINE HYDROCHLORIDE
     Route: 065
  137. AMITRIPTYLINE [Suspect]
     Active Substance: AMITRIPTYLINE
     Route: 065
  138. NASONEX [Suspect]
     Active Substance: MOMETASONE FUROATE
     Indication: Product used for unknown indication
     Route: 065
  139. NASONEX [Suspect]
     Active Substance: MOMETASONE FUROATE
     Dosage: SPRAY, METERED DOSE
     Route: 065
  140. NEOMYCIN SULFATE [Suspect]
     Active Substance: NEOMYCIN SULFATE
     Indication: Product used for unknown indication
     Route: 065
  141. TIOTROPIUM BROMIDE MONOHYDRATE [Suspect]
     Active Substance: TIOTROPIUM BROMIDE MONOHYDRATE
     Indication: Product used for unknown indication
     Route: 065
  142. TIOTROPIUM BROMIDE MONOHYDRATE [Suspect]
     Active Substance: TIOTROPIUM BROMIDE MONOHYDRATE
     Route: 055
  143. TIOTROPIUM BROMIDE MONOHYDRATE [Suspect]
     Active Substance: TIOTROPIUM BROMIDE MONOHYDRATE
     Route: 065
  144. DIBUCAINE HYDROCHLORIDE\HYDROCORTISONE [Suspect]
     Active Substance: DIBUCAINE HYDROCHLORIDE\HYDROCORTISONE
     Indication: Product used for unknown indication
     Route: 065
  145. DIBUCAINE HYDROCHLORIDE\HYDROCORTISONE [Suspect]
     Active Substance: DIBUCAINE HYDROCHLORIDE\HYDROCORTISONE
     Route: 065
  146. OZEMPIC [Suspect]
     Active Substance: SEMAGLUTIDE
     Indication: Product used for unknown indication
     Dosage: OZEMPIC MULTIDOSE PREFILLED PEN DISPENSES 0.25MG OR 0.5MG DOSE
     Route: 058
  147. PROCTOSEDYL [Suspect]
     Active Substance: DIBUCAINE HYDROCHLORIDE\HYDROCORTISONE
     Indication: Product used for unknown indication
     Route: 065
  148. PROCTOSEDYL [Suspect]
     Active Substance: DIBUCAINE HYDROCHLORIDE\HYDROCORTISONE
     Route: 065
  149. FLUOXETINE [Suspect]
     Active Substance: FLUOXETINE HYDROCHLORIDE
     Indication: Product used for unknown indication
     Route: 065
  150. FLUOXETINE [Suspect]
     Active Substance: FLUOXETINE HYDROCHLORIDE
     Route: 065
  151. FLUOXETINE [Suspect]
     Active Substance: FLUOXETINE HYDROCHLORIDE
     Route: 065
  152. FLUOXETINE [Suspect]
     Active Substance: FLUOXETINE HYDROCHLORIDE
     Route: 065
  153. FLUOXETINE [Suspect]
     Active Substance: FLUOXETINE HYDROCHLORIDE
     Route: 065
  154. FLUOXETINE [Suspect]
     Active Substance: FLUOXETINE HYDROCHLORIDE
     Dosage: FLUOXETINE HYDROCHLORIDE
     Route: 065
  155. NUCALA [Suspect]
     Active Substance: MEPOLIZUMAB
     Indication: Product used for unknown indication
     Route: 058
  156. NUCALA [Suspect]
     Active Substance: MEPOLIZUMAB
     Route: 065
  157. PREDNISOLONE SODIUM PHOSPHATE [Suspect]
     Active Substance: PREDNISOLONE SODIUM PHOSPHATE
     Indication: Product used for unknown indication
     Route: 065
  158. PREDNISOLONE SODIUM PHOSPHATE [Suspect]
     Active Substance: PREDNISOLONE SODIUM PHOSPHATE
     Route: 065
  159. PREDNISOLONE SODIUM PHOSPHATE [Suspect]
     Active Substance: PREDNISOLONE SODIUM PHOSPHATE
     Route: 065
  160. PREDNISOLONE SODIUM PHOSPHATE [Suspect]
     Active Substance: PREDNISOLONE SODIUM PHOSPHATE
     Route: 065
  161. PREDNISOLONE SODIUM PHOSPHATE [Suspect]
     Active Substance: PREDNISOLONE SODIUM PHOSPHATE
     Route: 065
  162. CARBAMAZEPINE [Suspect]
     Active Substance: CARBAMAZEPINE
     Indication: Product used for unknown indication
     Route: 065
  163. LACTASE [Suspect]
     Active Substance: LACTASE
     Indication: Product used for unknown indication
     Route: 065
  164. DIBUCAINE\ESCULIN\HYDROCORTISONE\NEOMYCIN [Suspect]
     Active Substance: DIBUCAINE\ESCULIN\HYDROCORTISONE\NEOMYCIN
     Indication: Product used for unknown indication
     Route: 065
  165. DIBUCAINE\ESCULIN\HYDROCORTISONE\NEOMYCIN [Suspect]
     Active Substance: DIBUCAINE\ESCULIN\HYDROCORTISONE\NEOMYCIN
     Route: 065
  166. BENZOCAINE\BUTAMBEN\ESCULIN\FRAMYCETIN\HEPARIN\HYDROCORTISONE [Suspect]
     Active Substance: BENZOCAINE\BUTAMBEN\ESCULIN\FRAMYCETIN\HEPARIN\HYDROCORTISONE
     Indication: Product used for unknown indication
     Route: 065
  167. BENZOCAINE\BUTAMBEN\ESCULIN\FRAMYCETIN\HEPARIN\HYDROCORTISONE [Suspect]
     Active Substance: BENZOCAINE\BUTAMBEN\ESCULIN\FRAMYCETIN\HEPARIN\HYDROCORTISONE
     Route: 065
  168. IPRATROPIUM BROMIDE [Suspect]
     Active Substance: IPRATROPIUM BROMIDE
     Indication: Product used for unknown indication
     Route: 065
  169. DIBUCAINE HYDROCHLORIDE\HYDROCORTISONE [Suspect]
     Active Substance: DIBUCAINE HYDROCHLORIDE\HYDROCORTISONE
     Indication: Product used for unknown indication
     Route: 065
  170. DILTIAZEM [Suspect]
     Active Substance: DILTIAZEM
     Indication: Product used for unknown indication
     Route: 042
  171. DILTIAZEM [Suspect]
     Active Substance: DILTIAZEM
     Route: 065
  172. INSULIN ASPART [Suspect]
     Active Substance: INSULIN ASPART
     Indication: Product used for unknown indication
     Route: 058
  173. MOMETASONE FUROATE\SALICYLIC ACID [Suspect]
     Active Substance: MOMETASONE FUROATE\SALICYLIC ACID
     Indication: Product used for unknown indication
     Route: 065
  174. INSULIN ASPART [Suspect]
     Active Substance: INSULIN ASPART
     Indication: Product used for unknown indication
     Dosage: X 30 3ML PENFILL?CARTRIDGE
     Route: 058
  175. BENZOCAINE [Suspect]
     Active Substance: BENZOCAINE
     Indication: Product used for unknown indication
     Route: 065
  176. DIBUCAINE HYDROCHLORIDE [Suspect]
     Active Substance: DIBUCAINE HYDROCHLORIDE
     Indication: Product used for unknown indication
     Route: 065
  177. NITROGLYCERIN [Suspect]
     Active Substance: NITROGLYCERIN
     Indication: Product used for unknown indication
     Dosage: METERED-DOSE (PUMP)
     Route: 065
  178. NITROFURANTOIN [Suspect]
     Active Substance: NITROFURANTOIN
     Indication: Product used for unknown indication
     Route: 065
  179. NITROFURANTOIN [Suspect]
     Active Substance: NITROFURANTOIN
     Route: 065
  180. PREDNISONE [Suspect]
     Active Substance: PREDNISONE
     Indication: Product used for unknown indication
     Route: 065
  181. PREDNISONE [Suspect]
     Active Substance: PREDNISONE
     Route: 065
  182. PREDNISONE [Suspect]
     Active Substance: PREDNISONE
     Route: 065
  183. PREDNISONE [Suspect]
     Active Substance: PREDNISONE
     Route: 065
  184. PREDNISONE [Suspect]
     Active Substance: PREDNISONE
     Route: 065
  185. CYANOCOBALAMIN [Suspect]
     Active Substance: CYANOCOBALAMIN
     Indication: Product used for unknown indication
     Route: 042
  186. CYANOCOBALAMIN [Suspect]
     Active Substance: CYANOCOBALAMIN
     Route: 042
  187. AMITRIPTYLINE HYDROCHLORIDE [Suspect]
     Active Substance: AMITRIPTYLINE HYDROCHLORIDE
     Indication: Product used for unknown indication
     Route: 065
  188. ATORVASTATIN CALCIUM [Suspect]
     Active Substance: ATORVASTATIN CALCIUM
     Indication: Product used for unknown indication
     Route: 065
  189. LACTASE [Suspect]
     Active Substance: LACTASE
     Indication: Product used for unknown indication
     Route: 065
  190. MOMETASONE [Suspect]
     Active Substance: MOMETASONE
     Indication: Product used for unknown indication
     Route: 065
  191. MOMETASONE [Suspect]
     Active Substance: MOMETASONE
     Route: 065
  192. NOVORAPID [Suspect]
     Active Substance: INSULIN ASPART
     Indication: Product used for unknown indication
     Dosage: SOLUTION?SUBCUTANEOUS
     Route: 042
  193. ACETAMINOPHEN [Suspect]
     Active Substance: ACETAMINOPHEN
     Indication: Product used for unknown indication
     Route: 065
  194. ACETAMINOPHEN [Suspect]
     Active Substance: ACETAMINOPHEN
     Route: 065
  195. ACETAMINOPHEN [Suspect]
     Active Substance: ACETAMINOPHEN
     Route: 065
  196. HYDROCORTISONE ACETATE [Suspect]
     Active Substance: HYDROCORTISONE ACETATE
     Indication: Product used for unknown indication
     Route: 065

REACTIONS (32)
  - Appetite disorder [Unknown]
  - Asthma [Unknown]
  - Chest discomfort [Unknown]
  - Cough [Unknown]
  - Fall [Unknown]
  - Flank pain [Unknown]
  - Heart sounds [Unknown]
  - Influenza [Unknown]
  - Injury [Unknown]
  - Loss of personal independence in daily activities [Unknown]
  - Lower respiratory tract infection [Unknown]
  - Productive cough [Unknown]
  - Prolonged expiration [Unknown]
  - Rales [Unknown]
  - Respiration abnormal [Unknown]
  - Rhinorrhoea [Unknown]
  - Sleep disorder due to a general medical condition [Unknown]
  - Stress [Unknown]
  - Chest pain [Unknown]
  - Weight decreased [Unknown]
  - Wheezing [Unknown]
  - Pyrexia [Unknown]
  - Nasopharyngitis [Unknown]
  - Upper respiratory tract infection [Unknown]
  - Angina pectoris [Unknown]
  - Dyspnoea [Unknown]
  - Dyspnoea exertional [Unknown]
  - Nasal congestion [Unknown]
  - Malaise [Unknown]
  - Insomnia [Unknown]
  - Depressive symptom [Unknown]
  - Depressed mood [Unknown]
